FAERS Safety Report 7710425-4 (Version None)
Quarter: 2011Q3

REPORT INFORMATION
  Report Type: 
  Country: None (occurrence: None)
  Receive Date: 20110825
  Receipt Date: 20110819
  Transmission Date: 20111222
  Serious: Yes (Life-Threatening, Other)
  Sender: FDA-Public Use
  Company Number: DE-ELI_LILLY_AND_COMPANY-DE201108006297

PATIENT
  Age: 53 Year
  Sex: Female

DRUGS (2)
  1. CISPLATIN [Concomitant]
     Dosage: 116 MG, UNKNOWN
     Route: 065
  2. ALIMTA [Suspect]
     Dosage: 775 MG, UNKNOWN
     Route: 042

REACTIONS (1)
  - DERMATITIS [None]
